FAERS Safety Report 21327770 (Version 10)
Quarter: 2022Q4

REPORT INFORMATION
  Report Type: Report from Study
  Country: CN (occurrence: None)
  Receive Date: 20220913
  Receipt Date: 20221122
  Transmission Date: 20230112
  Serious: Yes (Hospitalization)
  Sender: FDA-Public Use
  Company Number: CN-Eisai Medical Research-EC-2022-123223

PATIENT
  Age: 64 Year
  Sex: Male
  Weight: 53 kg

DRUGS (14)
  1. LENVATINIB [Suspect]
     Active Substance: LENVATINIB
     Indication: Renal cell carcinoma
     Dosage: STARTING DOSE AT 20 MG, FLUCTUATED DOSAGE
     Route: 048
     Dates: start: 20220804, end: 20220904
  2. LENVATINIB [Suspect]
     Active Substance: LENVATINIB
     Route: 048
     Dates: start: 20220922
  3. BELZUTIFAN [Suspect]
     Active Substance: BELZUTIFAN
     Indication: Renal cell carcinoma
     Route: 048
     Dates: start: 20220714, end: 20220904
  4. AMLODIPINE BESYLATE [Concomitant]
     Active Substance: AMLODIPINE BESYLATE
     Dates: start: 200401
  5. DILTIAZEM HYDROCHLORIDE [Concomitant]
     Active Substance: DILTIAZEM HYDROCHLORIDE
     Dates: start: 200401
  6. ASPIRIN [Concomitant]
     Active Substance: ASPIRIN
     Dates: start: 200401
  7. ISOSORBIDE MONONITRATE [Concomitant]
     Active Substance: ISOSORBIDE MONONITRATE
     Dates: start: 200401
  8. METFORMIN HYDROCHLORIDE [Concomitant]
     Active Substance: METFORMIN HYDROCHLORIDE
     Dates: start: 200401
  9. ROSUVASTATIN CALCIUM [Concomitant]
     Active Substance: ROSUVASTATIN CALCIUM
     Dates: start: 200401
  10. ACARBOSE [Concomitant]
     Active Substance: ACARBOSE
     Dates: start: 200401
  11. METOPROLOL TARTRATE [Concomitant]
     Active Substance: METOPROLOL TARTRATE
     Dates: start: 200401
  12. PERINDOPRIL ERBUMINE [Concomitant]
     Active Substance: PERINDOPRIL ERBUMINE
     Dates: start: 200401
  13. ZOLEDRONIC ACID [Concomitant]
     Active Substance: ZOLEDRONIC ACID
     Route: 042
     Dates: start: 20210916
  14. GLIMEPIRIDE [Concomitant]
     Active Substance: GLIMEPIRIDE
     Dates: start: 20220721

REACTIONS (1)
  - Transaminases increased [Recovered/Resolved]

NARRATIVE: CASE EVENT DATE: 20220905
